FAERS Safety Report 8335871-X (Version None)
Quarter: 2012Q2

REPORT INFORMATION
  Report Type: 
  Country: None (occurrence: None)
  Receive Date: 20120504
  Receipt Date: 20120430
  Transmission Date: 20120825
  Serious: No
  Sender: FDA-Public Use
  Company Number: US-PFIZER INC-2012106318

PATIENT
  Sex: Female
  Weight: 68 kg

DRUGS (3)
  1. PRISTIQ [Suspect]
     Indication: ASTHENIA
  2. PRISTIQ [Suspect]
     Indication: CRYING
     Dosage: 100 MG, 1X/DAY
     Route: 048
     Dates: start: 20110401, end: 20120426
  3. LOVASTATIN [Concomitant]
     Indication: BLOOD TRIGLYCERIDES INCREASED
     Dosage: UNK

REACTIONS (4)
  - PARAESTHESIA [None]
  - HYPOAESTHESIA [None]
  - MALAISE [None]
  - EMOTIONAL DISORDER [None]
